FAERS Safety Report 8018666-6 (Version None)
Quarter: 2012Q1

REPORT INFORMATION
  Report Type: 
  Country: None (occurrence: None)
  Receive Date: 20120103
  Receipt Date: 20120103
  Transmission Date: 20120608
  Serious: Yes (Other)
  Sender: FDA-Public Use
  Company Number: None

PATIENT
  Sex: Female
  Weight: 72.574 kg

DRUGS (1)
  1. LIPITOR [Suspect]
     Dates: start: 20100501, end: 20111201

REACTIONS (2)
  - EXERCISE TOLERANCE DECREASED [None]
  - INTERSTITIAL LUNG DISEASE [None]
